FAERS Safety Report 5162496-X (Version None)
Quarter: 2006Q4

REPORT INFORMATION
  Report Type: 
  Country: None (occurrence: None)
  Receive Date: 20061128
  Receipt Date: 20061128
  Transmission Date: 20070319
  Serious: Yes (Hospitalization)
  Sender: FDA-Public Use
  Company Number: None

PATIENT
  Age: 54 Year
  Sex: Male
  Weight: 60.8 kg

DRUGS (12)
  1. CARBIDOPA + LEVODOPA [Suspect]
     Dosage: Q3HBY MOUTH
     Route: 048
     Dates: start: 20050825, end: 20060929
  2. CARBIDOPA + LEVODOPA [Suspect]
     Dosage: Q6HBY MOUTH (PO)
     Route: 048
     Dates: start: 20050828, end: 20060929
  3. ATIVAN [Concomitant]
  4. HALOPERIDOL [Concomitant]
  5. ACETAMINOPHEN [Concomitant]
  6. PRILOSEC [Concomitant]
  7. DOCUSATE SODIUM (COLACE) [Concomitant]
  8. ROPINIROLE HCL [Concomitant]
  9. BACLOFEN [Concomitant]
  10. DIPHENHYDRAMINE HCL [Concomitant]
  11. LORAZEPAM [Concomitant]
  12. MILK OF MAGNESIA [Concomitant]

REACTIONS (1)
  - DYSKINESIA [None]
